FAERS Safety Report 9127155 (Version 1)
Quarter: 2013Q1

REPORT INFORMATION
  Report Type: Spontaneous
  Country: US (occurrence: US)
  Receive Date: 20130228
  Receipt Date: 20130228
  Transmission Date: 20140127
  Serious: No
  Sender: FDA-Public Use
  Company Number: US-009507513-1302USA010528

PATIENT
  Sex: Male

DRUGS (1)
  1. DULERA [Suspect]
     Route: 065

REACTIONS (1)
  - Amphetamines positive [Unknown]
